FAERS Safety Report 22043487 (Version 1)
Quarter: 2023Q1

REPORT INFORMATION
  Report Type: Spontaneous
  Country: CA (occurrence: CA)
  Receive Date: 20230228
  Receipt Date: 20230228
  Transmission Date: 20230417
  Serious: Yes (Hospitalization)
  Sender: FDA-Public Use
  Company Number: CA-STERISCIENCE B.V.-2023-ST-000864

PATIENT
  Age: 57 Year
  Sex: Female

DRUGS (7)
  1. VANCOMYCIN [Suspect]
     Active Substance: VANCOMYCIN
     Indication: Antibiotic therapy
     Dosage: 4 GRAM
     Route: 065
  2. GENTAMICIN [Suspect]
     Active Substance: GENTAMICIN
     Indication: Antibiotic therapy
     Dosage: 480 MILLIGRAM, WITH A SMALL MOLD
     Route: 065
  3. ACETAMINOPHEN\CODEINE PHOSPHATE [Concomitant]
     Active Substance: ACETAMINOPHEN\CODEINE PHOSPHATE
     Indication: Product used for unknown indication
     Dosage: UNK
     Route: 065
  4. PANTOPRAZOLE [Concomitant]
     Active Substance: PANTOPRAZOLE
     Indication: Product used for unknown indication
     Dosage: UNK
     Route: 065
  5. LORAZEPAM [Concomitant]
     Active Substance: LORAZEPAM
     Indication: Product used for unknown indication
     Dosage: UNK
     Route: 065
  6. FUROSEMIDE [Concomitant]
     Active Substance: FUROSEMIDE
     Indication: Product used for unknown indication
     Dosage: UNK
     Route: 065
  7. CEFAZOLIN [Concomitant]
     Active Substance: CEFAZOLIN
     Indication: Preoperative care
     Dosage: UNK
     Route: 065

REACTIONS (1)
  - Candida infection [Recovered/Resolved]
